FAERS Safety Report 5595789-2 (Version None)
Quarter: 2008Q1

REPORT INFORMATION
  Report Type: 
  Country: None (occurrence: None)
  Receive Date: 20080118
  Receipt Date: 20080110
  Transmission Date: 20080703
  Serious: Yes (Hospitalization)
  Sender: FDA-Public Use
  Company Number: B0503656A

PATIENT
  Age: 17 Year
  Sex: Female
  Weight: 57 kg

DRUGS (3)
  1. AUGMENTIN '125' [Suspect]
     Indication: TONSILLITIS
     Dosage: 1000MG PER DAY
     Route: 048
     Dates: start: 20070910, end: 20070917
  2. AZITHROMYCIN [Suspect]
     Indication: TONSILLITIS
     Dosage: 500MG PER DAY
     Route: 048
     Dates: start: 20070919, end: 20070919
  3. UNKNOWN DRUG [Concomitant]
     Route: 065

REACTIONS (3)
  - PRURITUS [None]
  - RASH MACULO-PAPULAR [None]
  - TOXIC SKIN ERUPTION [None]
